FAERS Safety Report 9455276 (Version 1)
Quarter: 2013Q3

REPORT INFORMATION
  Report Type: Spontaneous
  Country: GB (occurrence: GB)
  Receive Date: 20130813
  Receipt Date: 20130813
  Transmission Date: 20140515
  Serious: Yes (Other)
  Sender: FDA-Public Use
  Company Number: GB-RANBAXY-2013R1-72008

PATIENT
  Age: 49 Year
  Sex: Female
  Weight: 72 kg

DRUGS (3)
  1. CO-AMOXICLAV [Suspect]
     Indication: URINARY TRACT INFECTION
     Dosage: 625 MG, TID
     Route: 048
     Dates: start: 20130624, end: 20130701
  2. ESTRADOT [Concomitant]
     Indication: PRODUCT USED FOR UNKNOWN INDICATION
     Dosage: UNK
     Route: 065
  3. MIRENA [Concomitant]
     Indication: CONTRACEPTION
     Dosage: UNK
     Route: 015

REACTIONS (1)
  - Vulvovaginal candidiasis [Recovered/Resolved]
